FAERS Safety Report 7214939-5 (Version None)
Quarter: 2011Q1

REPORT INFORMATION
  Report Type: 
  Country: None (occurrence: None)
  Receive Date: 20110107
  Receipt Date: 20100527
  Transmission Date: 20110831
  Serious: No
  Sender: FDA-Public Use
  Company Number: A0861691A

PATIENT
  Age: 58 Year
  Sex: Female

DRUGS (3)
  1. GLUCOPHAGE [Concomitant]
  2. DIOVAN [Concomitant]
  3. LOVAZA [Suspect]
     Dosage: 1G TWICE PER DAY
     Route: 048

REACTIONS (1)
  - BLISTER [None]
